FAERS Safety Report 18733501 (Version 1)
Quarter: 2021Q1

REPORT INFORMATION
  Report Type: Spontaneous
  Country: US (occurrence: US)
  Receive Date: 20210112
  Receipt Date: 20210112
  Transmission Date: 20210419
  Serious: No
  Sender: FDA-Public Use
  Company Number: US-ASTRAZENECA-2021A001811

PATIENT
  Sex: Female

DRUGS (6)
  1. GENERIC QUETIAPINE [Concomitant]
     Active Substance: QUETIAPINE
     Indication: PANIC ATTACK
  2. SEROQUEL [Suspect]
     Active Substance: QUETIAPINE FUMARATE
     Dosage: 25 MG IN THE MORNING AND 25 MG AT 2 PM
     Route: 048
  3. SEROQUEL [Suspect]
     Active Substance: QUETIAPINE FUMARATE
     Route: 048
  4. SEROQUEL [Suspect]
     Active Substance: QUETIAPINE FUMARATE
     Route: 048
  5. GENERIC QUETIAPINE [Concomitant]
     Active Substance: QUETIAPINE
     Indication: ANXIETY
  6. GENERIC QUETIAPINE [Concomitant]
     Active Substance: QUETIAPINE
     Indication: DEPRESSION

REACTIONS (3)
  - Nervousness [Unknown]
  - Anxiety [Unknown]
  - Malaise [Unknown]
